FAERS Safety Report 12084662 (Version 1)
Quarter: 2016Q1

REPORT INFORMATION
  Report Type: Report from Study
  Country: US (occurrence: US)
  Receive Date: 20160217
  Receipt Date: 20160217
  Transmission Date: 20160526
  Serious: Yes (Hospitalization, Disabling)
  Sender: FDA-Public Use
  Company Number: US-ASTELLAS-2008002009

PATIENT
  Age: 64 Year

DRUGS (2)
  1. ERLOTINIB [Suspect]
     Active Substance: ERLOTINIB
     Indication: BILIARY NEOPLASM
     Dosage: 150 MG, ONCE DAILY, GIVEN DAILY FROM DAY 1-28 OF EACH 28 DAY CYCLE
     Route: 048
     Dates: start: 20080326
  2. BEVACIZUMAB [Suspect]
     Active Substance: BEVACIZUMAB
     Indication: BILIARY NEOPLASM
     Dosage: 5 MG/KG, EVERY 2 WEEKS, GIVEN OVER 30-90 MINUTES ON DAY 1 AND 15 OF EACH FOUR WEEK CYCLE.
     Route: 042
     Dates: start: 20080326

REACTIONS (2)
  - Embolism [Unknown]
  - Nail disorder [Recovered/Resolved]

NARRATIVE: CASE EVENT DATE: 20080516
